FAERS Safety Report 17652404 (Version 6)
Quarter: 2020Q2

REPORT INFORMATION
  Report Type: Spontaneous
  Country: US (occurrence: US)
  Receive Date: 20200409
  Receipt Date: 20200424
  Transmission Date: 20200713
  Serious: Yes (Death, Hospitalization)
  Sender: FDA-Public Use
  Company Number: US-CELGENEUS-USA-20200402237

PATIENT
  Age: 56 Year
  Sex: Female
  Weight: 116 kg

DRUGS (9)
  1. MEDI4736 (DURVALUMAB) [Suspect]
     Active Substance: DURVALUMAB
     Indication: TRIPLE NEGATIVE BREAST CANCER
     Dosage: 10 MILLIGRAM/KILOGRAM
     Route: 042
     Dates: start: 20191111, end: 20200113
  2. DOXORUBICIN [Suspect]
     Active Substance: DOXORUBICIN
     Indication: TRIPLE NEGATIVE BREAST CANCER
     Dosage: 140 MILLIGRAM
     Route: 041
     Dates: start: 20200203, end: 20200323
  3. ABRAXANE [Suspect]
     Active Substance: PACLITAXEL
     Indication: TRIPLE NEGATIVE BREAST CANCER
     Dosage: 10 MILLIGRAM/KILOGRAM
     Route: 065
     Dates: start: 20191111, end: 20200113
  4. COMPAZINE [Concomitant]
     Active Substance: PROCHLORPERAZINE MALEATE
     Indication: TRIPLE NEGATIVE BREAST CANCER
     Dosage: 10 MILLIGRAM
     Route: 065
     Dates: start: 20191108
  5. SENNA [Concomitant]
     Active Substance: SENNA LEAF\SENNOSIDES\SENNOSIDES A AND B
     Indication: TRIPLE NEGATIVE BREAST CANCER
     Dosage: 2 MILLIGRAM
     Route: 048
     Dates: start: 20191123
  6. CARVEDILOL. [Concomitant]
     Active Substance: CARVEDILOL
     Indication: TRIPLE NEGATIVE BREAST CANCER
     Dosage: 25 MILLIGRAM
     Route: 048
     Dates: start: 20200125
  7. CYCLOPHOSPHAMIDE. [Suspect]
     Active Substance: CYCLOPHOSPHAMIDE
     Indication: TRIPLE NEGATIVE BREAST CANCER
     Dosage: 1400 MILLIGRAM
     Route: 041
     Dates: start: 20200203, end: 20200323
  8. XANAX [Concomitant]
     Active Substance: ALPRAZOLAM
     Indication: TRIPLE NEGATIVE BREAST CANCER
     Dosage: .5 MILLIGRAM
     Route: 048
     Dates: start: 20191101
  9. LOSARTAN. [Concomitant]
     Active Substance: LOSARTAN
     Indication: TRIPLE NEGATIVE BREAST CANCER
     Dosage: 100 MILLIGRAM
     Route: 048
     Dates: start: 20191108

REACTIONS (5)
  - Sepsis [Fatal]
  - Cerebrovascular accident [Fatal]
  - Pyrexia [Unknown]
  - Diarrhoea [Unknown]
  - Acute kidney injury [Unknown]

NARRATIVE: CASE EVENT DATE: 20200329
